FAERS Safety Report 20575080 (Version 1)
Quarter: 2022Q1

REPORT INFORMATION
  Report Type: Spontaneous
  Country: US (occurrence: None)
  Receive Date: 20220310
  Receipt Date: 20220310
  Transmission Date: 20220424
  Serious: Yes (Death)
  Sender: FDA-Public Use
  Company Number: US-FARMAPROD-202202-0246

PATIENT
  Sex: Female

DRUGS (21)
  1. OXERVATE [Suspect]
     Active Substance: CENEGERMIN-BKBJ
     Indication: Neurotrophic keratopathy
     Route: 047
     Dates: start: 20220127
  2. OXERVATE [Suspect]
     Active Substance: CENEGERMIN-BKBJ
     Indication: Hypoaesthesia eye
  3. ADVIL [Concomitant]
     Active Substance: IBUPROFEN
  4. MULTIVITAMIN 50 PLUS [Concomitant]
  5. PROBIOTIC 10B CELL [Concomitant]
  6. PROAIR HFA [Concomitant]
     Active Substance: ALBUTEROL SULFATE
     Dosage: HYDROFLUOROALKANE AEROSOL WITH ADAPTER
  7. STIOLTO RESPIMAT [Concomitant]
     Active Substance: OLODATEROL HYDROCHLORIDE\TIOTROPIUM BROMIDE MONOHYDRATE
  8. LANTUS [Concomitant]
     Active Substance: INSULIN GLARGINE
     Dosage: 100/ML VIAL
  9. HUMALOG [Concomitant]
     Active Substance: INSULIN LISPRO
     Dosage: 100/ML CARTRIDGE
  10. GABAPENTIN [Concomitant]
     Active Substance: GABAPENTIN
  11. CARVEDILOL [Concomitant]
     Active Substance: CARVEDILOL
  12. METOLAZONE [Concomitant]
     Active Substance: METOLAZONE
  13. POTASSIUM 595 [Concomitant]
     Dosage: (99) MG
  14. ARMODAFINIL [Concomitant]
     Active Substance: ARMODAFINIL
  15. TORSEMIDE [Concomitant]
     Active Substance: TORSEMIDE
  16. ATORVASTATIN CALCIUM [Concomitant]
     Active Substance: ATORVASTATIN CALCIUM
  17. ELIQUIS [Concomitant]
     Active Substance: APIXABAN
  18. AMLODIPINE BESYLATE [Concomitant]
     Active Substance: AMLODIPINE BESYLATE
  19. AMIODARONE HYDROCHLORIDE [Concomitant]
     Active Substance: AMIODARONE HYDROCHLORIDE
  20. THERATEARS [Concomitant]
     Active Substance: CARBOXYMETHYLCELLULOSE SODIUM
  21. SODIUM CHLORIDE HYPERTONICITY [Concomitant]
     Active Substance: SODIUM CHLORIDE

REACTIONS (2)
  - Death [Fatal]
  - Vision blurred [Unknown]
